FAERS Safety Report 5908295-X (Version None)
Quarter: 2008Q4

REPORT INFORMATION
  Report Type: 
  Country: None (occurrence: None)
  Receive Date: 20081002
  Receipt Date: 20081002
  Transmission Date: 20090506
  Serious: Yes (Other)
  Sender: FDA-Public Use
  Company Number: None

PATIENT
  Age: 56 Year
  Sex: Female
  Weight: 56.6996 kg

DRUGS (13)
  1. LAMOTRIGINE [Suspect]
     Indication: AFFECTIVE DISORDER
     Dosage: 75MG DAILY PO
     Route: 048
     Dates: start: 20080801, end: 20080903
  2. LAMOTRIGINE [Suspect]
     Indication: CEREBRAL PALSY
     Dosage: 75MG DAILY PO
     Route: 048
     Dates: start: 20080801, end: 20080903
  3. CYMBALTA [Concomitant]
  4. BUPROPION HCL [Concomitant]
  5. ZALEPLON [Concomitant]
  6. BACLOFEN [Concomitant]
  7. PREVACID [Concomitant]
  8. NIASPAN [Concomitant]
  9. ASPIRIN [Concomitant]
  10. TRAZODONE HCL [Concomitant]
  11. ZYRTEC [Concomitant]
  12. RELAFEN [Concomitant]
  13. OPTIVAR [Concomitant]

REACTIONS (5)
  - DIZZINESS [None]
  - GAIT DISTURBANCE [None]
  - NAUSEA [None]
  - PRODUCT QUALITY ISSUE [None]
  - THINKING ABNORMAL [None]
